FAERS Safety Report 4936829-0 (Version None)
Quarter: 2006Q1

REPORT INFORMATION
  Report Type: 
  Country: None (occurrence: None)
  Receive Date: 20060307
  Receipt Date: 20051019
  Transmission Date: 20060701
  Serious: Yes (Hospitalization)
  Sender: FDA-Public Use
  Company Number: US-MERCK-0510USA08281

PATIENT
  Age: 71 Year
  Sex: Male
  Weight: 94 kg

DRUGS (9)
  1. VIOXX [Suspect]
     Indication: ARTHRITIS
     Route: 048
     Dates: start: 20000920, end: 20020926
  2. VIOXX [Suspect]
     Indication: PAIN
     Route: 048
     Dates: start: 20000920, end: 20020926
  3. NEURONTIN [Concomitant]
     Route: 048
     Dates: start: 20020702
  4. VASOTEC RPD [Concomitant]
     Route: 048
     Dates: start: 19980101, end: 20011213
  5. HYDROCHLOROTHIAZIDE [Concomitant]
     Route: 065
  6. FOSAMAX [Concomitant]
     Route: 048
  7. TRILEPTAL [Concomitant]
     Route: 065
  8. ENALAPRIL MALEATE [Concomitant]
     Route: 065
     Dates: start: 20010401, end: 20011001
  9. ACCUPRIL [Concomitant]
     Route: 065
     Dates: start: 20011213, end: 20020926

REACTIONS (6)
  - ADVERSE EVENT [None]
  - ARTERIOSCLEROSIS [None]
  - BLOOD CHOLESTEROL INCREASED [None]
  - CORONARY ARTERY DISEASE [None]
  - MYOCARDIAL INFARCTION [None]
  - POST PROCEDURAL HAEMORRHAGE [None]
